FAERS Safety Report 6838476-2 (Version None)
Quarter: 2010Q3

REPORT INFORMATION
  Report Type: 
  Country: None (occurrence: None)
  Receive Date: 20100713
  Receipt Date: 20070611
  Transmission Date: 20110219
  Serious: No
  Sender: FDA-Public Use
  Company Number: US-PFIZER INC-2007050004

PATIENT
  Sex: Male
  Weight: 72.7 kg

DRUGS (2)
  1. CHANTIX [Suspect]
     Indication: SMOKING CESSATION THERAPY
     Dates: start: 20070507, end: 20070609
  2. MULTI-VITAMINS [Concomitant]

REACTIONS (8)
  - CONSTIPATION [None]
  - DECREASED APPETITE [None]
  - DIARRHOEA [None]
  - DISTURBANCE IN ATTENTION [None]
  - DREAMY STATE [None]
  - HEAD DISCOMFORT [None]
  - IRRITABILITY [None]
  - NAUSEA [None]
